FAERS Safety Report 8531616-9 (Version None)
Quarter: 2012Q3

REPORT INFORMATION
  Report Type: 
  Country: None (occurrence: None)
  Receive Date: 20120723
  Receipt Date: 20120712
  Transmission Date: 20120928
  Serious: Yes (Hospitalization)
  Sender: FDA-Public Use
  Company Number: US-BAXTER-2012BAX011296

PATIENT
  Sex: Female

DRUGS (1)
  1. ARALAST NP [Suspect]
     Route: 042
     Dates: end: 20111001

REACTIONS (3)
  - AORTIC ANEURYSM [None]
  - ENZYME ABNORMALITY [None]
  - BLOOD DISORDER [None]
